FAERS Safety Report 22125030 (Version 2)
Quarter: 2023Q2

REPORT INFORMATION
  Report Type: Report from Study
  Country: UA (occurrence: UA)
  Receive Date: 20230322
  Receipt Date: 20230503
  Transmission Date: 20230721
  Serious: Yes (Hospitalization)
  Sender: FDA-Public Use
  Company Number: UA-PFIZER INC-PV202300050021

PATIENT
  Age: 64 Year
  Sex: Male
  Weight: 51 kg

DRUGS (5)
  1. TALAZOPARIB [Suspect]
     Active Substance: TALAZOPARIB
     Indication: Prostate cancer metastatic
     Dosage: UNK, 1X/DAY
     Route: 048
     Dates: start: 20220217, end: 20230102
  2. ENZALUTAMIDE [Suspect]
     Active Substance: ENZALUTAMIDE
     Indication: Prostate cancer metastatic
     Dosage: 160 MG, 1X/DAY
     Route: 048
     Dates: start: 20220217, end: 20230102
  3. MESALAMINE [Concomitant]
     Active Substance: MESALAMINE
     Indication: Crohn^s disease
     Dosage: 2000 MG, 2X/DAY
     Route: 048
     Dates: start: 20230201
  4. FERROUS SULFATE ANHYDROUS [Concomitant]
     Active Substance: FERROUS SULFATE ANHYDROUS
     Indication: Crohn^s disease
     Dosage: 320 MG, 2X/DAY
     Route: 048
     Dates: start: 20230201, end: 20230220
  5. IBUPROFEN [Concomitant]
     Active Substance: IBUPROFEN
     Indication: Hyperthermia
     Dosage: 200 MG, 2X/DAY
     Route: 048
     Dates: start: 20230101, end: 20230227

REACTIONS (1)
  - Crohn^s disease [Not Recovered/Not Resolved]

NARRATIVE: CASE EVENT DATE: 20230222
